FAERS Safety Report 20421020 (Version 7)
Quarter: 2023Q1

REPORT INFORMATION
  Report Type: Report from Study
  Country: CA (occurrence: CA)
  Receive Date: 20220203
  Receipt Date: 20230223
  Transmission Date: 20230417
  Serious: Yes (Life-Threatening, Other)
  Sender: FDA-Public Use
  Company Number: CA-JNJFOC-20220149079

PATIENT
  Age: 86 Year
  Sex: Male

DRUGS (1)
  1. APALUTAMIDE [Suspect]
     Active Substance: APALUTAMIDE
     Indication: Hormone-dependent prostate cancer
     Route: 048
     Dates: start: 20220117

REACTIONS (7)
  - Hypersensitivity [Recovering/Resolving]
  - Speech disorder [Not Recovered/Not Resolved]
  - Atrial fibrillation [Unknown]
  - Prostate cancer metastatic [Not Recovered/Not Resolved]
  - Drug ineffective [Unknown]
  - Fatigue [Unknown]
  - Depressed mood [Unknown]
